FAERS Safety Report 13639851 (Version 1)
Quarter: 2017Q2

REPORT INFORMATION
  Report Type: Spontaneous
  Country: US (occurrence: US)
  Receive Date: 20170609
  Receipt Date: 20170609
  Transmission Date: 20170830
  Serious: Yes (Other)
  Sender: FDA-Public Use
  Company Number: US-ROCHE-733619

PATIENT
  Age: 27 Year
  Sex: Male
  Weight: 86.2 kg

DRUGS (2)
  1. KLONOPIN [Suspect]
     Active Substance: CLONAZEPAM
     Indication: ANGER
     Dosage: CO-INDICATION: MOOD CHANGES, TREATMENT ON AND OFF
     Route: 048
  2. LYRICA [Suspect]
     Active Substance: PREGABALIN
     Indication: HEADACHE
     Dosage: CO-INDICATION: LEG PAIN RELATED TO NERVE DAMAGE DUE TO FRACTUREFORM: HARD CAPSULES
     Route: 048

REACTIONS (3)
  - Drug ineffective [Unknown]
  - Insomnia [Not Recovered/Not Resolved]
  - Depression [Not Recovered/Not Resolved]

NARRATIVE: CASE EVENT DATE: 2009
